FAERS Safety Report 6271020-X (Version None)
Quarter: 2009Q3

REPORT INFORMATION
  Report Type: 
  Country: None (occurrence: None)
  Receive Date: 20090716
  Receipt Date: 20090708
  Transmission Date: 20100115
  Serious: Yes (Hospitalization, Other)
  Sender: FDA-Public Use
  Company Number: CA-GENENTECH-286847

PATIENT
  Sex: Male

DRUGS (4)
  1. RITUXAN [Suspect]
     Indication: COLD TYPE HAEMOLYTIC ANAEMIA
     Dosage: 727 MG, 1/WEEK
     Route: 042
     Dates: start: 20090615, end: 20090630
  2. PREDNISONE TAB [Suspect]
     Indication: COLD TYPE HAEMOLYTIC ANAEMIA
     Dosage: 50 MG, UNK
     Route: 048
     Dates: start: 20090501
  3. FLOMAX [Concomitant]
     Indication: DRUG USE FOR UNKNOWN INDICATION
     Dosage: UNK
  4. ADALAT [Concomitant]
     Indication: DRUG USE FOR UNKNOWN INDICATION
     Dosage: UNK

REACTIONS (2)
  - DIABETES MELLITUS [None]
  - THROMBOCYTOPENIA [None]
